FAERS Safety Report 25665211 (Version 1)
Quarter: 2025Q3

REPORT INFORMATION
  Report Type: Spontaneous
  Country: EU (occurrence: EU)
  Receive Date: 20250811
  Receipt Date: 20250811
  Transmission Date: 20251020
  Serious: Yes (Hospitalization)
  Sender: CHEPLAPHARM
  Company Number: None

PATIENT
  Age: 87 Year
  Sex: Male

DRUGS (14)
  1. CANDESARTAN [Suspect]
     Active Substance: CANDESARTAN
     Indication: Hypertension
     Dosage: 0.5 ON BREAKFAST?DAILY DOSE: 4 MILLIGRAM
     Route: 048
     Dates: start: 20210914
  2. QUETIAPINE [Suspect]
     Active Substance: QUETIAPINE
     Indication: Agitation
     Route: 048
     Dates: start: 20250627, end: 20250627
  3. QUETIAPINE [Suspect]
     Active Substance: QUETIAPINE
     Indication: Behaviour disorder
     Route: 048
     Dates: start: 20250627, end: 20250627
  4. QUETIAPINE [Suspect]
     Active Substance: QUETIAPINE
     Indication: Agitation
     Dosage: BEFORE BED?DAILY DOSE: 25 MILLIGRAM
     Route: 048
  5. QUETIAPINE [Suspect]
     Active Substance: QUETIAPINE
     Indication: Behaviour disorder
     Dosage: BEFORE BED?DAILY DOSE: 25 MILLIGRAM
     Route: 048
  6. ABILIFY [Suspect]
     Active Substance: ARIPIPRAZOLE
     Indication: Adjustment disorder with depressed mood
     Dosage: 1 EVERY 24 HOURS?DAILY DOSE: 5 MILLIGRAM
     Route: 048
     Dates: start: 20250626
  7. ABILIFY [Suspect]
     Active Substance: ARIPIPRAZOLE
     Indication: Adjustment disorder with depressed mood
     Dosage: AT BREAKFAST?DAILY DOSE: 10 MILLIGRAM
     Route: 048
  8. MIRTAZAPINE [Suspect]
     Active Substance: MIRTAZAPINE
     Indication: Adjustment disorder with depressed mood
     Dosage: 1 AT DINNER?DAILY DOSE: 25 MILLIGRAM
     Route: 048
     Dates: start: 20250626, end: 20250630
  9. PAROXETINE [Suspect]
     Active Substance: PAROXETINE
     Indication: Adjustment disorder with depressed mood
     Dosage: 1 AT BREAKFAST?DAILY DOSE: 30 MILLIGRAM
     Route: 048
     Dates: start: 20210914
  10. PAROXETINE [Suspect]
     Active Substance: PAROXETINE
     Indication: Adjustment disorder with depressed mood
     Dosage: G3 20 MG, 1.5 TABLETS 9 A.M. AT BREAKFAST. ?DAILY DOSE: 1.5 DOSAGE FORM
     Route: 048
  11. OMEPRAZOLE [Concomitant]
     Active Substance: OMEPRAZOLE
     Dosage: 1-0-0?DAILY DOSE: 20 MILLIGRAM
  12. TAMSULOSIN HYDROCHLORIDE [Concomitant]
     Active Substance: TAMSULOSIN HYDROCHLORIDE
     Dosage: 1-0-0?DAILY DOSE: 0.4 MILLIGRAM
  13. DUTASTERIDE [Concomitant]
     Active Substance: DUTASTERIDE
     Dosage: 0-1-0
  14. CALCIUM CARBONATE\CHOLECALCIFEROL [Concomitant]
     Active Substance: CALCIUM CARBONATE\CHOLECALCIFEROL
     Dosage: 1000/880 IU 0-1-0

REACTIONS (5)
  - Inappropriate antidiuretic hormone secretion [Recovered/Resolved]
  - Seizure [Recovered/Resolved]
  - Hyponatraemia [Recovering/Resolving]
  - Normocytic anaemia [Unknown]
  - Off label use [Recovered/Resolved]

NARRATIVE: CASE EVENT DATE: 20250627
